FAERS Safety Report 11591458 (Version 1)
Quarter: 2015Q4

REPORT INFORMATION
  Report Type: Spontaneous
  Country: US (occurrence: US)
  Receive Date: 20151005
  Receipt Date: 20151005
  Transmission Date: 20160304
  Serious: No
  Sender: FDA-Public Use
  Company Number: US-NOVEN PHARMACEUTICALS, INC.-14US010271

PATIENT

DRUGS (3)
  1. COMBIPATCH [Suspect]
     Active Substance: ESTRADIOL\NORETHINDRONE ACETATE
     Dosage: 0.05MG/0.14MG/DAY, ONCE WEEKLY
     Route: 062
     Dates: start: 2011, end: 2011
  2. COMBIPATCH [Suspect]
     Active Substance: ESTRADIOL\NORETHINDRONE ACETATE
     Indication: HORMONE REPLACEMENT THERAPY
     Dosage: 1/2 X 0.05MG/0.14MG/DAY, TWICE WEEKLY
     Route: 062
     Dates: start: 2011
  3. COMBIPATCH [Suspect]
     Active Substance: ESTRADIOL\NORETHINDRONE ACETATE
     Dosage: 0.05MG/0.14MG/DAY, TWICE WEEKLY
     Route: 062
     Dates: start: 2011, end: 2011

REACTIONS (11)
  - Application site discolouration [Recovering/Resolving]
  - Incorrect drug administration duration [Recovering/Resolving]
  - Wrong technique in product usage process [Not Recovered/Not Resolved]
  - Inappropriate schedule of drug administration [Recovering/Resolving]
  - Application site vesicles [Recovering/Resolving]
  - Application site erythema [Recovering/Resolving]
  - Product quality issue [Not Recovered/Not Resolved]
  - Application site pruritus [Recovering/Resolving]
  - Application site dryness [Recovering/Resolving]
  - Drug ineffective [Recovered/Resolved]
  - Adverse event [Recovered/Resolved]

NARRATIVE: CASE EVENT DATE: 2011
